FAERS Safety Report 5371187-1 (Version None)
Quarter: 2007Q2

REPORT INFORMATION
  Report Type: 
  Country: None (occurrence: None)
  Receive Date: 20070614
  Receipt Date: 20070327
  Transmission Date: 20071010
  Serious: No
  Sender: FDA-Public Use
  Company Number: BDI-009294

PATIENT
  Age: 14 Year
  Sex: Male
  Weight: 68.18 kg

DRUGS (3)
  1. MULTIHANCE [Suspect]
     Indication: GLIOMA
     Dosage: 13 ML ONCE IV
     Route: 042
     Dates: start: 20070327, end: 20070327
  2. MULTIHANCE [Suspect]
     Indication: NUCLEAR MAGNETIC RESONANCE IMAGING BRAIN
     Dosage: 13 ML ONCE IV
     Route: 042
     Dates: start: 20070327, end: 20070327
  3. DEPAKOTE [Concomitant]

REACTIONS (1)
  - HYPERSENSITIVITY [None]
